FAERS Safety Report 10112262 (Version 2)
Quarter: 2014Q2

REPORT INFORMATION
  Report Type: Report from Study
  Country: GB (occurrence: GB)
  Receive Date: 20140425
  Receipt Date: 20140529
  Transmission Date: 20141212
  Serious: Yes (Hospitalization, Other)
  Sender: FDA-Public Use
  Company Number: GB-ABBVIE-14P-167-1227067-00

PATIENT
  Sex: Male

DRUGS (6)
  1. HUMIRA [Suspect]
     Indication: CROHN^S DISEASE
     Route: 058
     Dates: start: 20140325, end: 20140414
  2. HUMIRA [Suspect]
     Indication: COLITIS
  3. AZATHIOPRINE [Concomitant]
     Indication: CROHN^S DISEASE
     Route: 048
     Dates: start: 20140311, end: 20140414
  4. AZATHIOPRINE [Concomitant]
     Indication: COLITIS
  5. MESALAZINE [Concomitant]
     Indication: PRODUCT USED FOR UNKNOWN INDICATION
     Route: 048
     Dates: start: 20140311
  6. PREDNISOLONE [Concomitant]
     Indication: PRODUCT USED FOR UNKNOWN INDICATION
     Dosage: ON REDUCING DOSE FINISHING 5/31/14
     Route: 048
     Dates: start: 20140325

REACTIONS (6)
  - Mobility decreased [Unknown]
  - Adverse drug reaction [Unknown]
  - Dyspnoea [Unknown]
  - Prescribed overdose [Unknown]
  - Pneumonia [Unknown]
  - Legionella infection [Unknown]
